FAERS Safety Report 7951752-5 (Version None)
Quarter: 2011Q4

REPORT INFORMATION
  Report Type: 
  Country: None (occurrence: None)
  Receive Date: 20111201
  Receipt Date: 20111128
  Transmission Date: 20120403
  Serious: Yes (Hospitalization, Other)
  Sender: FDA-Public Use
  Company Number: US-JNJFOC-20100806050

PATIENT
  Sex: Male
  Weight: 83.46 kg

DRUGS (3)
  1. AMOXICILLIN [Concomitant]
     Indication: INFECTION
  2. LEVAQUIN [Suspect]
     Indication: BRONCHITIS
     Route: 048
     Dates: start: 20070101, end: 20070101
  3. LEVAQUIN [Suspect]
     Indication: SINUSITIS
     Route: 048
     Dates: start: 20070101, end: 20070101

REACTIONS (3)
  - LIGAMENT SPRAIN [None]
  - MENISCUS LESION [None]
  - TENDON RUPTURE [None]
